FAERS Safety Report 7175628 (Version 2)
Quarter: 2014Q2

REPORT INFORMATION
  Report Type: Spontaneous
  Country: None (occurrence: None)
  Receive Date: 20091030
  Receipt Date: 20140416
  Transmission Date: 20141212
  Serious: Yes (Death, Life-Threatening, Hospitalization)
  Sender: FDA-Public Use
  Company Number: AUR-APL-2009-01074

PATIENT
  Age: 71 Year
  Sex: Female

DRUGS (6)
  1. PAROXETINE HYDROCHLORIDE [Suspect]
     Indication: PRODUCT USED FOR UNKNOWN INDICATION
     Dosage: 20MG - BID - ORAL
     Route: 048
     Dates: start: 200901, end: 20090503
  2. LYRICA (PREGABALIN) [Suspect]
     Indication: PRODUCT USED FOR UNKNOWN INDICATION
     Dosage: 50MG - TID - ORAL
     Route: 048
     Dates: start: 200901, end: 20090503
  3. EQUANIL (MEPROBAMATE) [Suspect]
     Indication: PRODUCT USED FOR UNKNOWN INDICATION
     Dosage: 400MG - TID - ORAL
     Route: 048
     Dates: start: 200901, end: 20090503
  4. TRANXENE (CLORAZEPATE DIPOTASSIUM) (CAPSULES) (CLORAZEPATE DIPOTASSIUM) [Suspect]
     Indication: PRODUCT USED FOR UNKNOWN INDICATION
     Dosage: 20MG - QID - ORAL
     Route: 048
     Dates: start: 200901, end: 20090503
  5. NOCTAMID (LORMETAZEPAM) [Suspect]
     Indication: PRODUCT USED FOR UNKNOWN INDICATION
     Dosage: 2MG - ORAL
     Route: 048
     Dates: start: 200901, end: 20090503
  6. MIANSERIN (HYDROCHLORIDE) [Suspect]
     Indication: PRODUCT USED FOR UNKNOWN INDICATION
     Dosage: ORAL
     Route: 048
     Dates: start: 200901, end: 20090503

REACTIONS (3)
  - Cardio-respiratory arrest [None]
  - Post-anoxic myoclonus [None]
  - Foreign body [None]
